FAERS Safety Report 9645559 (Version 1)
Quarter: 2013Q4

REPORT INFORMATION
  Report Type: Spontaneous
  Country: US (occurrence: None)
  Receive Date: 20131023
  Receipt Date: 20131023
  Transmission Date: 20140711
  Serious: Yes (Hospitalization, Other)
  Sender: FDA-Public Use
  Company Number: 2013US00726

PATIENT
  Age: 23 Year
  Sex: 0

DRUGS (2)
  1. LAMOTRIGINE [Suspect]
  2. FLUDROCORTISONE [Suspect]

REACTIONS (2)
  - Pneumonia aspiration [None]
  - Toxicity to various agents [None]
